FAERS Safety Report 5085015-5 (Version None)
Quarter: 2006Q3

REPORT INFORMATION
  Report Type: 
  Country: None (occurrence: None)
  Receive Date: 20060815
  Receipt Date: 20060803
  Transmission Date: 20061208
  Serious: Yes (Hospitalization)
  Sender: FDA-Public Use
  Company Number: 430038M06USA

PATIENT
  Age: 59 Year
  Sex: Male
  Weight: 72.4 kg

DRUGS (13)
  1. NOVANTRONE [Suspect]
     Indication: ACUTE MYELOID LEUKAEMIA
     Dosage: 15 MG, 1 IN 1 DAYS, INTRAVENOUS   (NOT OTHERWISE SPECIFIED)
     Route: 042
     Dates: start: 20060211, end: 20060215
  2. ETOPOSIDE [Suspect]
     Dosage: 188 MG, 1 IN 1 DAYS, INTRAVENOUS (NOT OTHERWISE SPECIFIED)
     Dates: start: 20060211, end: 20060215
  3. CYTARABINE [Suspect]
     Dosage: 1881 MG, 1 IN 1 DAYS, INTRAVENOUS (NOT OTHERWISE SPECIFIED)
     Dates: start: 20060211, end: 20060215
  4. VORICONZOLE (VORICONAZOLE) [Concomitant]
  5. ALLOPURINOL [Concomitant]
  6. NORFLOXACIN [Concomitant]
  7. ACETAMINOPHEN [Concomitant]
  8. K-DUR 10 [Concomitant]
  9. COLCHICUM JTL LIQ [Concomitant]
  10. VALACICLOVIR (VALACICLOVIR /01269701/) [Concomitant]
  11. VANCOMYCIN (VANCOMYCIN  /00314401/) [Concomitant]
  12. DIPHENHYDRAMINE HCL [Concomitant]
  13. PIPERACILLIN AND TAZOBACTAM (PIP/TAZO) [Concomitant]

REACTIONS (3)
  - CENTRAL LINE INFECTION [None]
  - FEBRILE NEUTROPENIA [None]
  - STAPHYLOCOCCAL INFECTION [None]
